FAERS Safety Report 5031214-8 (Version None)
Quarter: 2006Q2

REPORT INFORMATION
  Report Type: 
  Country: None (occurrence: None)
  Receive Date: 20060621
  Receipt Date: 20060331
  Transmission Date: 20061013
  Serious: No
  Sender: FDA-Public Use
  Company Number: US-GLAXOSMITHKLINE-A0599946A

PATIENT
  Age: 69 Year
  Sex: Male

DRUGS (8)
  1. AVANDARYL [Suspect]
     Dosage: 4MG PER DAY
     Route: 048
     Dates: start: 20060327
  2. FACTIVE [Concomitant]
  3. DIGOXIN [Concomitant]
  4. LIPITOR [Concomitant]
  5. WARFARIN SODIUM [Concomitant]
  6. ATENOLOL [Concomitant]
  7. AMARYL [Concomitant]
  8. ANTIBIOTIC [Concomitant]

REACTIONS (2)
  - DIARRHOEA [None]
  - MUSCLE SPASMS [None]
